FAERS Safety Report 5261142-4 (Version None)
Quarter: 2007Q1

REPORT INFORMATION
  Report Type: 
  Country: None (occurrence: None)
  Receive Date: 20070309
  Receipt Date: 20070302
  Transmission Date: 20070707
  Serious: Yes (Other)
  Sender: FDA-Public Use
  Company Number: GB-ABBOTT-07P-167-0354955-00

PATIENT
  Sex: Female
  Weight: 76 kg

DRUGS (9)
  1. HUMIRA [Suspect]
     Indication: RHEUMATOID ARTHRITIS
     Route: 058
     Dates: start: 20061201, end: 20061201
  2. HUMIRA [Suspect]
     Indication: ANKYLOSING SPONDYLITIS
  3. AMOXICILLIN [Suspect]
     Indication: DENTAL DISORDER PROPHYLAXIS
     Route: 048
  4. METHOTREXATE [Concomitant]
     Indication: RHEUMATOID ARTHRITIS
     Route: 048
     Dates: start: 20020101
  5. FOLIC ACID [Concomitant]
     Indication: VITAMIN SUPPLEMENTATION
     Route: 048
     Dates: start: 20020101
  6. PREDNISOLONE [Concomitant]
     Indication: RHEUMATOID ARTHRITIS
     Dosage: 4/3 MG  OD
     Route: 048
     Dates: start: 19990101
  7. MELOXICAM [Concomitant]
     Indication: RHEUMATOID ARTHRITIS
     Route: 048
     Dates: start: 20060101
  8. LANSOPRAZOLE [Concomitant]
     Indication: PROPHYLAXIS AGAINST GASTROINTESTINAL ULCER
     Route: 048
     Dates: start: 20020101
  9. RESIDRONATE [Concomitant]
     Indication: OSTEOPENIA
     Route: 048
     Dates: start: 20020101

REACTIONS (4)
  - HIP ARTHROPLASTY [None]
  - HYPERSENSITIVITY [None]
  - HYPERVENTILATION [None]
  - PARAESTHESIA ORAL [None]
